FAERS Safety Report 7321388-8 (Version None)
Quarter: 2011Q1

REPORT INFORMATION
  Report Type: 
  Country: None (occurrence: None)
  Receive Date: 20110228
  Receipt Date: 20110228
  Transmission Date: 20110831
  Serious: Yes (Hospitalization)
  Sender: FDA-Public Use
  Company Number: CA-ABBOTT-11P-028-0706508-00

PATIENT
  Sex: Female
  Weight: 81.72 kg

DRUGS (2)
  1. LEVOTHYROXINE SODIUM [Concomitant]
     Indication: THYROID DISORDER
     Route: 048
     Dates: start: 19890101
  2. HUMIRA [Suspect]
     Indication: PSORIATIC ARTHROPATHY
     Route: 058
     Dates: start: 20090906, end: 20100201

REACTIONS (5)
  - MYOSITIS [None]
  - COMPARTMENT SYNDROME [None]
  - PAIN IN EXTREMITY [None]
  - CELLULITIS [None]
  - INFECTION [None]
